FAERS Safety Report 4837578-X (Version None)
Quarter: 2005Q4

REPORT INFORMATION
  Report Type: 
  Country: None (occurrence: None)
  Receive Date: 20051024
  Receipt Date: 20050913
  Transmission Date: 20060501
  Serious: Yes (Other)
  Sender: FDA-Public Use
  Company Number: 2005129330

PATIENT
  Age: 56 Year
  Sex: Male
  Weight: 83.9154 kg

DRUGS (4)
  1. RELPAX [Suspect]
     Indication: MIGRAINE
     Dosage: (40 MG, 1 IN 1 AS NECESSARY)
     Dates: start: 20050101, end: 20050901
  2. ACYCLOVIR [Concomitant]
  3. ANTIHYPERTENSIVES (ANTIHYPERTENSIVES) [Concomitant]
  4. CHOLESTEROL- AND TRIGLYCERIDES REDUCERS (CHOLESTEROL- AND TRIGLYCERIDE [Concomitant]

REACTIONS (4)
  - DIARRHOEA [None]
  - MIGRAINE [None]
  - REBOUND EFFECT [None]
  - VOMITING [None]
